FAERS Safety Report 11576777 (Version 2)
Quarter: 2015Q4

REPORT INFORMATION
  Report Type: Spontaneous
  Country: DE (occurrence: DE)
  Receive Date: 20150930
  Receipt Date: 20151016
  Transmission Date: 20160304
  Serious: Yes (Other)
  Sender: FDA-Public Use
  Company Number: DE-PFIZER INC-2015323336

PATIENT
  Age: 35 Year
  Sex: Male

DRUGS (12)
  1. NOVAMINSULFON [Concomitant]
     Active Substance: METAMIZOLE
     Dosage: 3000 MG, DAILY
     Dates: start: 20101112
  2. STANGYL [Concomitant]
     Active Substance: TRIMIPRAMINE MALEATE
     Dosage: UNK, AS NEEDED
  3. SEROQUEL [Concomitant]
     Active Substance: QUETIAPINE FUMARATE
     Dosage: 200 MG, DAILY
     Route: 048
     Dates: start: 201009, end: 20101012
  4. SEROQUEL [Concomitant]
     Active Substance: QUETIAPINE FUMARATE
     Dosage: 100 MG, DAILY
     Route: 048
     Dates: start: 20101118
  5. LYRICA [Suspect]
     Active Substance: PREGABALIN
     Dosage: 150 MG, DAILY
     Route: 048
     Dates: start: 20100728, end: 20101031
  6. SEROQUEL [Concomitant]
     Active Substance: QUETIAPINE FUMARATE
     Dosage: 225 MG, DAILY
     Route: 048
     Dates: start: 20101013, end: 20101112
  7. PANTOZOL [Concomitant]
     Active Substance: PANTOPRAZOLE SODIUM
     Dosage: 20 MG, DAILY
     Route: 048
  8. IBUPROFEN. [Concomitant]
     Active Substance: IBUPROFEN
     Dosage: 1800 MG, DAILY
     Route: 048
     Dates: start: 20101103
  9. SEROQUEL [Concomitant]
     Active Substance: QUETIAPINE FUMARATE
     Dosage: 175 MG, DAILY
     Route: 048
     Dates: start: 20101113
  10. NOVAMINSULFON [Concomitant]
     Active Substance: METAMIZOLE
     Dosage: 2000 MG, DAILY
     Dates: start: 20101103, end: 20101111
  11. REMERGIL [Concomitant]
     Active Substance: MIRTAZAPINE
     Dosage: 30 MG, DAILY
     Route: 048
     Dates: start: 20101018
  12. LYRICA [Suspect]
     Active Substance: PREGABALIN
     Indication: SCIATICA
     Dosage: 300 MG, DAILY
     Route: 048
     Dates: start: 201007, end: 20101027

REACTIONS (8)
  - Pain [Recovered/Resolved]
  - Drug withdrawal syndrome [Recovered/Resolved]
  - Drug dependence [Recovered/Resolved]
  - Sleep disorder [Recovered/Resolved]
  - Hyperhidrosis [Recovered/Resolved]
  - Drug abuse [Unknown]
  - Somnambulism [Unknown]
  - Restlessness [Recovered/Resolved]

NARRATIVE: CASE EVENT DATE: 20101028
